FAERS Safety Report 14107335 (Version 1)
Quarter: 2017Q4

REPORT INFORMATION
  Report Type: Spontaneous
  Country: US (occurrence: US)
  Receive Date: 20171019
  Receipt Date: 20171019
  Transmission Date: 20180321
  Serious: No
  Sender: FDA-Public Use
  Company Number: None

PATIENT
  Age: 21 Year
  Sex: Female
  Weight: 81 kg

DRUGS (2)
  1. CYPROFLOXACIN [Suspect]
     Active Substance: CIPROFLOXACIN
     Indication: URINARY TRACT INFECTION
     Route: 048
  2. ZANTAC [Concomitant]
     Active Substance: RANITIDINE HYDROCHLORIDE

REACTIONS (4)
  - Mental disorder [None]
  - Suicidal ideation [None]
  - Anxiety [None]
  - Heart rate increased [None]

NARRATIVE: CASE EVENT DATE: 20171017
